FAERS Safety Report 4401691-1 (Version None)
Quarter: 2004Q3

REPORT INFORMATION
  Report Type: 
  Country: None (occurrence: None)
  Receive Date: 20040719
  Receipt Date: 20040705
  Transmission Date: 20050211
  Serious: Yes (Other)
  Sender: FDA-Public Use
  Company Number: NL-GLAXOSMITHKLINE-B0338976A

PATIENT
  Age: 75 Year
  Sex: Male

DRUGS (7)
  1. AUGMENTIN '125' [Suspect]
  2. INDOCID RETARD [Concomitant]
     Dosage: 75MG TWICE PER DAY
  3. ZANTAC [Concomitant]
     Dosage: 150MG PER DAY
  4. PLAQUENIL [Concomitant]
     Dosage: 200MG TWICE PER DAY
  5. LASIX [Concomitant]
     Dosage: 40MG PER DAY
  6. ATROVENT [Concomitant]
     Route: 055
  7. FLIXOTIDE [Concomitant]
     Route: 055

REACTIONS (1)
  - HEPATOCELLULAR DAMAGE [None]
